FAERS Safety Report 5070081-3 (Version None)
Quarter: 2006Q3

REPORT INFORMATION
  Report Type: 
  Country: None (occurrence: None)
  Receive Date: 20060803
  Receipt Date: 20060414
  Transmission Date: 20061208
  Serious: Yes (Other)
  Sender: FDA-Public Use
  Company Number: US-BRISTOL-MYERS SQUIBB COMPANY-13348982

PATIENT
  Age: 64 Year
  Sex: Male

DRUGS (7)
  1. ERBITUX [Suspect]
     Indication: NON-SMALL CELL LUNG CANCER
     Dosage: INITIATED ON 19-OCT-2005.  DOSE DELAYED/OMITTED DUE TO THE EVENT.
     Route: 042
     Dates: start: 20060414, end: 20060414
  2. CARBOPLATIN [Suspect]
     Indication: NON-SMALL CELL LUNG CANCER
     Dosage: INITIATED ON 19-OCT-2005.
     Route: 042
     Dates: start: 20060125, end: 20060125
  3. PACLITAXEL [Suspect]
     Indication: NON-SMALL CELL LUNG CANCER
     Dosage: INITIATED ON 19-OCT-2005.
     Route: 042
     Dates: start: 20060202, end: 20060202
  4. COREG [Concomitant]
     Dates: start: 20060125
  5. PRAVACHOL [Concomitant]
     Dates: start: 20050101
  6. PREVACID [Concomitant]
     Dates: start: 20050101
  7. TINZAPARIN [Concomitant]
     Dosage: 20,000 UNITS.
     Dates: start: 20060210

REACTIONS (1)
  - ELECTROCARDIOGRAM QT CORRECTED INTERVAL PROLONGED [None]
